FAERS Safety Report 18052574 (Version 1)
Quarter: 2020Q3

REPORT INFORMATION
  Report Type: Spontaneous
  Country: CH (occurrence: CH)
  Receive Date: 20200722
  Receipt Date: 20200722
  Transmission Date: 20201103
  Serious: Yes (Other)
  Sender: FDA-Public Use
  Company Number: CH-TEVA-2020-CH-1803359

PATIENT
  Age: 33 Year
  Sex: Male

DRUGS (5)
  1. NICOTINELL [Concomitant]
     Active Substance: NICOTINE
     Dosage: 21 MG/24 HOURS 1?0?0?0, PERCUTANEOUS
     Route: 062
     Dates: start: 20200625, end: 20200703
  2. CO?AMOXI MEPHA [Suspect]
     Active Substance: AMOXICILLIN\CLAVULANIC ACID
     Indication: PNEUMONIA ASPIRATION
     Dosage: 3600 MILLIGRAM DAILY; 1,200 MG 1?1?1; (AMOXICILLIN TRIHYDRATE): 400MG; (CLAVULANATE POTASSIUM): 57MG
     Route: 042
     Dates: start: 20200626, end: 20200702
  3. QUETIAPIN? [Concomitant]
     Active Substance: QUETIAPINE
     Dosage: 25 MG 0?0?0?2 PER OS
     Route: 048
     Dates: start: 20200625
  4. ATROVENT [Concomitant]
     Active Substance: IPRATROPIUM BROMIDE
     Dosage: 0.25 MG/2 ML DOSE 1?1?1?1, BY INHALATION
     Route: 055
     Dates: start: 20200626, end: 20200702
  5. SALBUTAMOL INHALATION [Concomitant]
     Active Substance: ALBUTEROL
     Dosage: 1.25 MG/2 ML DOSE 1?1?1?1, BY INHALATION
     Route: 055
     Dates: start: 20200626, end: 20200702

REACTIONS (1)
  - Drug-induced liver injury [Recovering/Resolving]

NARRATIVE: CASE EVENT DATE: 20200627
